FAERS Safety Report 24119451 (Version 2)
Quarter: 2024Q3

REPORT INFORMATION
  Report Type: Report from Study
  Country: JP (occurrence: JP)
  Receive Date: 20240722
  Receipt Date: 20240730
  Transmission Date: 20241017
  Serious: No
  Sender: TEVA
  Company Number: JP-OTSUKA-2023_027999

PATIENT
  Age: 39 Year
  Sex: Female

DRUGS (15)
  1. FREMANEZUMAB [Suspect]
     Active Substance: FREMANEZUMAB
     Indication: Migraine prophylaxis
     Dosage: DOSAGE TEXT: 225 MG (1ST DOSE) (SINGLE DOSE)
     Route: 058
     Dates: start: 20220926, end: 20220926
  2. FREMANEZUMAB [Suspect]
     Active Substance: FREMANEZUMAB
     Indication: Migraine prophylaxis
     Dosage: DOSAGE TEXT: 225 MG (2ND DOSE) (SINGLE DOSE)
     Route: 058
     Dates: start: 20221031, end: 20221031
  3. FREMANEZUMAB [Suspect]
     Active Substance: FREMANEZUMAB
     Indication: Migraine prophylaxis
     Dosage: DOSAGE TEXT: 225 MG (3RD DOSE) (SINGLE DOSE)
     Route: 058
     Dates: start: 20221128, end: 20221128
  4. AJOVY [Suspect]
     Active Substance: FREMANEZUMAB-VFRM
     Indication: Migraine prophylaxis
     Dosage: DOSAGE TEXT: 225 MG (10TH DOSE) (SINGLE DOSE)
     Route: 058
     Dates: start: 20230612, end: 20230612
  5. AJOVY [Suspect]
     Active Substance: FREMANEZUMAB-VFRM
     Indication: Migraine prophylaxis
     Dosage: DOSAGE TEXT: 225 MG (11TH DOSE) (SINGLE DOSE)
     Route: 058
     Dates: start: 20230710, end: 20230710
  6. AJOVY [Suspect]
     Active Substance: FREMANEZUMAB-VFRM
     Indication: Migraine prophylaxis
     Dosage: DOSAGE TEXT: 225 MG (12TH DOSE) (SINGLE DOSE)
     Route: 058
     Dates: start: 20230807, end: 20230807
  7. AJOVY [Suspect]
     Active Substance: FREMANEZUMAB-VFRM
     Indication: Migraine prophylaxis
     Dosage: DOSAGE TEXT: 225 MG (13TH DOSE) (SINGLE DOSE)
     Route: 058
     Dates: start: 20230904, end: 20230904
  8. AJOVY [Suspect]
     Active Substance: FREMANEZUMAB-VFRM
     Indication: Migraine prophylaxis
     Dosage: DOSAGE TEXT: 225 MG (14TH DOSE) (SINGLE DOSE)
     Route: 058
     Dates: start: 20231002, end: 20231002
  9. AJOVY [Suspect]
     Active Substance: FREMANEZUMAB-VFRM
     Indication: Migraine prophylaxis
     Dosage: DOSAGE TEXT: 225 MG (4TH DOSE) (SINGLE DOSE)
     Route: 058
     Dates: start: 20221226, end: 20221226
  10. AJOVY [Suspect]
     Active Substance: FREMANEZUMAB-VFRM
     Indication: Migraine prophylaxis
     Dosage: DOSAGE TEXT: 225 MG (5TH DOSE) (SINGLE DOSE)
     Route: 058
     Dates: start: 20230123, end: 20230123
  11. AJOVY [Suspect]
     Active Substance: FREMANEZUMAB-VFRM
     Indication: Migraine prophylaxis
     Dosage: DOSAGE TEXT: 225 MG (6TH DOSE) (SINGLE DOSE)
     Route: 058
     Dates: start: 20230220, end: 20230220
  12. AJOVY [Suspect]
     Active Substance: FREMANEZUMAB-VFRM
     Indication: Migraine prophylaxis
     Dosage: DOSAGE TEXT: 225 MG (7TH DOSE) (SINGLE DOSE)
     Route: 058
     Dates: start: 20230320, end: 20230320
  13. AJOVY [Suspect]
     Active Substance: FREMANEZUMAB-VFRM
     Indication: Migraine prophylaxis
     Dosage: DOSAGE TEXT: 225 MG (8TH DOSE) (SINGLE DOSE)
     Route: 058
     Dates: start: 20230417, end: 20230417
  14. AJOVY [Suspect]
     Active Substance: FREMANEZUMAB-VFRM
     Indication: Migraine prophylaxis
     Dosage: DOSAGE TEXT: 225 MG (9TH DOSE) (SINGLE DOSE)
     Route: 058
     Dates: start: 20230515, end: 20230515
  15. ZOMIG [Concomitant]
     Active Substance: ZOLMITRIPTAN
     Indication: Migraine
     Dosage: DOSAGE TEXT: 2.5 MG, QD
     Route: 048

REACTIONS (4)
  - Prurigo [Recovering/Resolving]
  - Injection site reaction [Not Recovered/Not Resolved]
  - Injection site dermatitis [Recovering/Resolving]
  - Inappropriate schedule of product administration [Unknown]

NARRATIVE: CASE EVENT DATE: 20230220
